FAERS Safety Report 23138669 (Version 1)
Quarter: 2023Q4

REPORT INFORMATION
  Report Type: Spontaneous
  Country: ES (occurrence: ES)
  Receive Date: 20231102
  Receipt Date: 20231102
  Transmission Date: 20240109
  Serious: Yes (Other)
  Sender: FDA-Public Use
  Company Number: None

PATIENT
  Age: 44 Year
  Sex: Male

DRUGS (2)
  1. CLONAZEPAM [Suspect]
     Active Substance: CLONAZEPAM
     Indication: Anxiety
     Dosage: 60 TABLETS?TID (EVERY 8 HRS)?DAILY DOSE: 1.5 MILLIGRAM
     Route: 048
     Dates: start: 20230904, end: 20230924
  2. CLONAZEPAM [Suspect]
     Active Substance: CLONAZEPAM
     Indication: Anxiety
     Dosage: TID?DAILY DOSE: 3 MILLIGRAM
     Route: 048

REACTIONS (3)
  - Sedation complication [Recovering/Resolving]
  - Listless [Recovering/Resolving]
  - Overdose [Recovering/Resolving]

NARRATIVE: CASE EVENT DATE: 20230904
